FAERS Safety Report 14853437 (Version 1)
Quarter: 2018Q2

REPORT INFORMATION
  Report Type: Spontaneous
  Country: US (occurrence: US)
  Receive Date: 20180507
  Receipt Date: 20180507
  Transmission Date: 20180711
  Serious: No
  Sender: FDA-Public Use
  Company Number: US-PFIZER INC-2018184225

PATIENT
  Sex: Male

DRUGS (1)
  1. ADVIL [Suspect]
     Active Substance: IBUPROFEN
     Dosage: UNK

REACTIONS (6)
  - Malaise [Unknown]
  - Tremor [Unknown]
  - Dyspnoea [Unknown]
  - Pain [Unknown]
  - Vomiting [Unknown]
  - Feeling cold [Unknown]
